FAERS Safety Report 6098081-5 (Version None)
Quarter: 2009Q1

REPORT INFORMATION
  Report Type: 
  Country: None (occurrence: None)
  Receive Date: 20090227
  Receipt Date: 20090219
  Transmission Date: 20090719
  Serious: Yes (Death, Other)
  Sender: FDA-Public Use
  Company Number: US-ASTRAZENECA-2008UW17601

PATIENT
  Age: 54 Year
  Sex: Female

DRUGS (16)
  1. CRESTOR [Suspect]
     Route: 048
     Dates: start: 20050301
  2. DIOVAN [Concomitant]
     Indication: HYPERTENSION
     Route: 048
  3. TOPROL-XL [Concomitant]
     Indication: HYPERTENSION
     Route: 048
  4. CELEXA [Concomitant]
  5. UNIVASC [Concomitant]
  6. PONDIMIN [Concomitant]
  7. PHENTERMINE [Concomitant]
  8. PROZAC [Concomitant]
     Indication: DEPRESSION
  9. FIORICET [Concomitant]
     Indication: HEADACHE
  10. SYNTHROID [Concomitant]
  11. INDERAL [Concomitant]
     Indication: HYPERCHOLESTEROLAEMIA
     Route: 048
     Dates: start: 20050318, end: 20050101
  12. AMBIEN [Concomitant]
  13. FASTIN [Concomitant]
  14. CLARINEX [Concomitant]
  15. NASONEX [Concomitant]
  16. ZOLOFT [Concomitant]

REACTIONS (8)
  - ACUTE GENERALISED EXANTHEMATOUS PUSTULOSIS [None]
  - ACUTE RESPIRATORY DISTRESS SYNDROME [None]
  - ADVERSE DRUG REACTION [None]
  - DRUG ERUPTION [None]
  - ERYTHEMA MULTIFORME [None]
  - SKIN REACTION [None]
  - STEVENS-JOHNSON SYNDROME [None]
  - TOXIC EPIDERMAL NECROLYSIS [None]
